FAERS Safety Report 8559877-0 (Version None)
Quarter: 2012Q3

REPORT INFORMATION
  Report Type: 
  Country: None (occurrence: None)
  Receive Date: 20120802
  Receipt Date: 20120731
  Transmission Date: 20120928
  Serious: Yes (Other)
  Sender: FDA-Public Use
  Company Number: US-PFIZER INC-2012186010

PATIENT
  Sex: Female
  Weight: 88.435 kg

DRUGS (7)
  1. LISINOPRIL [Concomitant]
     Dosage: UNK
  2. GABAPENTIN [Suspect]
     Indication: FIBROMYALGIA
     Dosage: 300 MG, 3X/DAY
     Route: 048
     Dates: start: 20110501
  3. GABAPENTIN [Suspect]
     Dosage: 300 MG TWICE A DAY + 2X300MG AT NIGHT
     Dates: end: 20111201
  4. ASPIRIN [Concomitant]
     Dosage: UNK
  5. OMEPRAZOLE [Concomitant]
     Dosage: 20 MG, UNK
  6. LYRICA [Suspect]
     Indication: FIBROMYALGIA
     Dosage: UNK, 1X/DAY
     Route: 048
     Dates: start: 20110501, end: 20110517
  7. CITALOPRAM [Concomitant]
     Dosage: 20 MG, UNK

REACTIONS (6)
  - HYPERSENSITIVITY [None]
  - GAIT DISTURBANCE [None]
  - SPEECH DISORDER [None]
  - MEMORY IMPAIRMENT [None]
  - RASH [None]
  - PRURITUS [None]
